FAERS Safety Report 9191756 (Version 1)
Quarter: 2013Q1

REPORT INFORMATION
  Report Type: Report from Study
  Country: GB (occurrence: GB)
  Receive Date: 20130326
  Receipt Date: 20130326
  Transmission Date: 20140127
  Serious: Yes (Life-Threatening)
  Sender: FDA-Public Use
  Company Number: GB-009507513-1303GBR011539

PATIENT
  Age: 67 Year
  Sex: Male
  Weight: 93.3 kg

DRUGS (4)
  1. TEMODAL [Suspect]
     Indication: GLIOBLASTOMA
     Dosage: 200 MG/M2, UNK
     Route: 048
     Dates: start: 20130131, end: 20130204
  2. GRANULOCYTE COLONY STIMULATING FACTOR [Suspect]
     Indication: GLIOBLASTOMA
     Dosage: 75 MCG DAILY
     Route: 023
     Dates: start: 20120905
  3. GRANULOCYTE COLONY STIMULATING FACTOR [Suspect]
     Dosage: 75 MCG DAILY
     Route: 023
     Dates: start: 20130220
  4. DALTEPARIN SODIUM [Concomitant]
     Dosage: UNK
     Route: 058
     Dates: start: 20120801

REACTIONS (1)
  - Pulmonary embolism [Unknown]
